FAERS Safety Report 9676001 (Version 1)
Quarter: 2013Q4

REPORT INFORMATION
  Report Type: Report from Study
  Country: BR (occurrence: BR)
  Receive Date: 20131107
  Receipt Date: 20131107
  Transmission Date: 20140711
  Serious: Yes (Hospitalization)
  Sender: FDA-Public Use
  Company Number: PHHY2013BR124940

PATIENT
  Age: 60 Year
  Sex: Female

DRUGS (7)
  1. DIOVAN [Suspect]
     Dosage: 1 DF(80 MG), DAILY
     Dates: start: 2005
  2. SIMVASTATIN [Suspect]
     Dosage: 25 MG, UNK
  3. ALDACTONE [Suspect]
  4. FUROSEMIDE [Suspect]
  5. LORAZEPAM [Suspect]
  6. PURAN T4 [Suspect]
     Dosage: 125 UG, UNK
  7. CARVEDILOL [Suspect]
     Dosage: 12.5 MG, UNK

REACTIONS (4)
  - Cerebrovascular accident [Recovering/Resolving]
  - Abasia [Recovering/Resolving]
  - Hemiplegia [Recovering/Resolving]
  - Dysphagia [Recovering/Resolving]
